FAERS Safety Report 7415905-7 (Version None)
Quarter: 2011Q2

REPORT INFORMATION
  Report Type: 
  Country: None (occurrence: None)
  Receive Date: 20110414
  Receipt Date: 20110405
  Transmission Date: 20111010
  Serious: Yes (Hospitalization)
  Sender: FDA-Public Use
  Company Number: US-AMGEN-USASP2011017971

PATIENT
  Age: 67 Year
  Sex: Female

DRUGS (2)
  1. ENBREL [Suspect]
     Indication: RHEUMATOID ARTHRITIS
     Dosage: 25 MG, 2 TIMES/WK
     Dates: start: 19980101
  2. TREXALL [Concomitant]
     Dosage: 6 MG, QWK

REACTIONS (9)
  - MALAISE [None]
  - WEIGHT DECREASED [None]
  - KNEE ARTHROPLASTY [None]
  - ASTHENIA [None]
  - PYREXIA [None]
  - RED BLOOD CELL SEDIMENTATION RATE INCREASED [None]
  - JOINT SWELLING [None]
  - FATIGUE [None]
  - ARTHRALGIA [None]
